FAERS Safety Report 8827752 (Version 1)
Quarter: 2012Q4

REPORT INFORMATION
  Report Type: 
  Country: US (occurrence: US)
  Receive Date: 20121008
  Receipt Date: 20121008
  Transmission Date: 20130627
  Serious: No
  Sender: FDA-Public Use
  Company Number: US-PFIZER INC-2012247753

PATIENT
  Sex: Male

DRUGS (2)
  1. ZOLOFT [Suspect]
     Dosage: UNK
  2. ARTHROTEC [Suspect]
     Dosage: 75/200 mg/mcg, UNK

REACTIONS (3)
  - Fatigue [Unknown]
  - Feeling abnormal [Unknown]
  - Withdrawal syndrome [Unknown]
